FAERS Safety Report 17809421 (Version 2)
Quarter: 2020Q3

REPORT INFORMATION
  Report Type: Report from Study
  Country: CZ (occurrence: CZ)
  Receive Date: 20200520
  Receipt Date: 20200814
  Transmission Date: 20201102
  Serious: Yes (Other)
  Sender: FDA-Public Use
  Company Number: CZ-BAYER-2020-085711

PATIENT
  Age: 20 Year
  Sex: Female
  Weight: 69 kg

DRUGS (1)
  1. JAYDESS [Suspect]
     Active Substance: LEVONORGESTREL
     Indication: CONTRACEPTION
     Dosage: 14 ?G PER DAY, CONTINUOUSLY
     Route: 015
     Dates: start: 20191016, end: 20200416

REACTIONS (7)
  - Euphoric mood [Recovered/Resolved]
  - Abdominal pain lower [Recovered/Resolved]
  - Anxiety [Recovered/Resolved]
  - Vulvovaginal discomfort [Recovered/Resolved]
  - Tearfulness [Recovered/Resolved]
  - Depression [None]
  - Vaginal haemorrhage [Recovered/Resolved]

NARRATIVE: CASE EVENT DATE: 201910
